FAERS Safety Report 4998032-8 (Version None)
Quarter: 2006Q2

REPORT INFORMATION
  Report Type: 
  Country: None (occurrence: None)
  Receive Date: 20060508
  Receipt Date: 20060427
  Transmission Date: 20061013
  Serious: Yes (Hospitalization)
  Sender: FDA-Public Use
  Company Number: 2006_000015

PATIENT
  Age: 49 Year
  Sex: Female

DRUGS (7)
  1. DEPOCYT [Suspect]
     Indication: METASTASES TO MENINGES
     Dosage: 50 MG;X1;INTH
     Route: 037
     Dates: start: 20060418, end: 20060418
  2. TEMODAR (160 MG) [Suspect]
     Indication: METASTASES TO MENINGES
     Dosage: 160 MG PO
     Route: 048
     Dates: start: 20060418, end: 20060420
  3. TEMOZOLOMIDE [Concomitant]
  4. DEXAMETHASONE [Concomitant]
  5. KEPPRA [Concomitant]
  6. ZOFRAN [Concomitant]
  7. MORPHINE [Concomitant]

REACTIONS (8)
  - BACK PAIN [None]
  - CONDITION AGGRAVATED [None]
  - DEPRESSED LEVEL OF CONSCIOUSNESS [None]
  - HEADACHE [None]
  - MENTAL STATUS CHANGES [None]
  - POST PROCEDURAL COMPLICATION [None]
  - SOMNOLENCE [None]
  - VOMITING [None]
